FAERS Safety Report 5052902-3 (Version None)
Quarter: 2006Q3

REPORT INFORMATION
  Report Type: 
  Country: None (occurrence: None)
  Receive Date: 20060712
  Receipt Date: 20060630
  Transmission Date: 20061208
  Serious: Yes (Death, Life-Threatening, Hospitalization, Other)
  Sender: FDA-Public Use
  Company Number: HQWYE337009JUN05

PATIENT
  Age: 48 Year
  Sex: Female
  Weight: 69 kg

DRUGS (6)
  1. MYLOTARG [Suspect]
     Indication: ACUTE MYELOID LEUKAEMIA
     Dosage: 9 MG 1X PER 1 DAY, INTRAVENOUS; SEE IMAGE
     Route: 042
     Dates: start: 20050425, end: 20050425
  2. MYLOTARG [Suspect]
     Indication: ACUTE MYELOID LEUKAEMIA
     Dosage: 9 MG 1X PER 1 DAY, INTRAVENOUS; SEE IMAGE
     Route: 042
     Dates: start: 20050512, end: 20050512
  3. MYLOTARG [Suspect]
     Indication: ACUTE MYELOID LEUKAEMIA
     Dosage: 9 MG 1X PER 1 DAY, INTRAVENOUS; SEE IMAGE
     Route: 042
     Dates: start: 20050530, end: 20050530
  4. HYDREA [Concomitant]
  5. CYTARABINE [Concomitant]
  6. MITOXANTRONE [Concomitant]

REACTIONS (6)
  - ASPARTATE AMINOTRANSFERASE INCREASED [None]
  - DISEASE PROGRESSION [None]
  - FEBRILE NEUTROPENIA [None]
  - INFUSION RELATED REACTION [None]
  - PLATELET COUNT DECREASED [None]
  - TRANSAMINASES INCREASED [None]
